FAERS Safety Report 17506310 (Version 3)
Quarter: 2022Q1

REPORT INFORMATION
  Report Type: Spontaneous
  Country: US (occurrence: None)
  Receive Date: 20200305
  Receipt Date: 20220314
  Transmission Date: 20220424
  Serious: No
  Sender: FDA-Public Use
  Company Number: US-ROCHE-2409315

PATIENT
  Age: 69 Year
  Sex: Female
  Weight: 74.910 kg

DRUGS (6)
  1. XOLAIR [Suspect]
     Active Substance: OMALIZUMAB
     Indication: Idiopathic urticaria
     Route: 058
     Dates: start: 20190807
  2. XOLAIR [Suspect]
     Active Substance: OMALIZUMAB
  3. XOLAIR [Suspect]
     Active Substance: OMALIZUMAB
  4. ZYRTEC (UNITED STATES) [Concomitant]
     Dosage: YES
     Dates: start: 201906
  5. PEPCID [Concomitant]
     Active Substance: FAMOTIDINE
     Dosage: YES
     Dates: start: 201906
  6. ATARAX [Concomitant]
     Active Substance: HYDROXYZINE HYDROCHLORIDE
     Dosage: YES
     Dates: start: 201906

REACTIONS (4)
  - Joint swelling [Recovered/Resolved]
  - Urticaria [Not Recovered/Not Resolved]
  - Pruritus [Unknown]
  - Movement disorder [Recovered/Resolved]

NARRATIVE: CASE EVENT DATE: 20190905
